FAERS Safety Report 5429305-2 (Version None)
Quarter: 2007Q3

REPORT INFORMATION
  Report Type: 
  Country: None (occurrence: None)
  Receive Date: 20070827
  Receipt Date: 20070827
  Transmission Date: 20080115
  Serious: Yes (Other)
  Sender: FDA-Public Use
  Company Number: None

PATIENT
  Age: 55 Year
  Sex: Female
  Weight: 74.8435 kg

DRUGS (2)
  1. TERBINAFINE HYDROCHLORIDE [Suspect]
     Indication: ONYCHOMYCOSIS
     Dosage: 250MG DAILY PO
     Route: 048
     Dates: start: 20070817, end: 20070820
  2. VYTORIN [Concomitant]

REACTIONS (8)
  - ABDOMINAL DISCOMFORT [None]
  - DYSGEUSIA [None]
  - FLATULENCE [None]
  - NASAL DISCOMFORT [None]
  - NASAL ODOUR [None]
  - OESOPHAGEAL PAIN [None]
  - POLLAKIURIA [None]
  - STOMACH DISCOMFORT [None]
